FAERS Safety Report 11595872 (Version 5)
Quarter: 2017Q1

REPORT INFORMATION
  Report Type: Report from Study
  Country: JP (occurrence: JP)
  Receive Date: 20151006
  Receipt Date: 20170302
  Transmission Date: 20170428
  Serious: Yes (Life-Threatening, Hospitalization, Other)
  Sender: FDA-Public Use
  Company Number: JP-ASTELLAS-2008JP005720

PATIENT
  Age: 29 Year
  Sex: Female
  Weight: 47 kg

DRUGS (36)
  1. TACROLIMUS. [Suspect]
     Active Substance: TACROLIMUS
     Indication: LUPUS NEPHRITIS
     Route: 048
     Dates: start: 20070911, end: 20080504
  2. PREDONINE [Suspect]
     Active Substance: PREDNISOLONE
     Indication: LUPUS NEPHRITIS
     Route: 048
     Dates: end: 20081109
  3. PREDONINE [Suspect]
     Active Substance: PREDNISOLONE
     Route: 048
     Dates: start: 20100107, end: 20100303
  4. PREDONINE [Suspect]
     Active Substance: PREDNISOLONE
     Route: 048
     Dates: start: 20110324, end: 20111026
  5. PREDONINE [Suspect]
     Active Substance: PREDNISOLONE
     Route: 048
     Dates: start: 20130912, end: 20140305
  6. PREDONINE [Suspect]
     Active Substance: PREDNISOLONE
     Route: 048
     Dates: start: 20140501, end: 20150304
  7. MUCOSTA [Concomitant]
     Active Substance: REBAMIPIDE
     Indication: RIB FRACTURE
     Route: 048
     Dates: start: 20120724, end: 20120802
  8. PREDONINE [Suspect]
     Active Substance: PREDNISOLONE
     Route: 048
     Dates: start: 20090417, end: 20100106
  9. SELARA [Suspect]
     Active Substance: EPLERENONE
     Indication: GENERALISED OEDEMA
     Route: 048
     Dates: start: 20080723, end: 20080807
  10. LOXONIN [Concomitant]
     Active Substance: LOXOPROFEN SODIUM
     Indication: ANALGESIC THERAPY
     Dosage: UNK UNK, UNKNOWN FREQ.
     Route: 048
  11. PREDONINE [Suspect]
     Active Substance: PREDNISOLONE
     Route: 048
     Dates: start: 20090131, end: 20090416
  12. DEPAKENE [Concomitant]
     Active Substance: VALPROIC ACID
     Indication: EPILEPSY
     Route: 048
     Dates: start: 20081119
  13. TAMIFLU [Concomitant]
     Active Substance: OSELTAMIVIR PHOSPHATE
     Indication: INFLUENZA
     Dosage: UNK UNK, UNKNOWN FREQ.
     Route: 048
     Dates: start: 201501, end: 201502
  14. PREDONINE [Suspect]
     Active Substance: PREDNISOLONE
     Route: 048
     Dates: start: 20160216
  15. DEPAKENE [Concomitant]
     Active Substance: VALPROIC ACID
     Indication: SEIZURE
  16. MAINTATE [Concomitant]
     Active Substance: BISOPROLOL FUMARATE
     Indication: TACHYCARDIA
     Dosage: UNK UNK, UNKNOWN FREQ.
     Route: 065
  17. TACROLIMUS. [Suspect]
     Active Substance: TACROLIMUS
     Route: 048
     Dates: start: 20120607
  18. PREDONINE [Suspect]
     Active Substance: PREDNISOLONE
     Route: 048
     Dates: start: 20081110, end: 20090130
  19. PREDONINE [Suspect]
     Active Substance: PREDNISOLONE
     Route: 048
     Dates: start: 20120405, end: 20130605
  20. ALEVIATIN                          /00017402/ [Suspect]
     Active Substance: PHENYTOIN SODIUM
     Indication: SEIZURE
     Route: 065
     Dates: start: 20101021, end: 20101021
  21. LOXONIN [Concomitant]
     Active Substance: LOXOPROFEN SODIUM
     Indication: RIB FRACTURE
     Route: 048
     Dates: start: 20120724, end: 20120802
  22. TACROLIMUS. [Suspect]
     Active Substance: TACROLIMUS
     Route: 048
     Dates: start: 20100608, end: 20120606
  23. PREDONINE [Suspect]
     Active Substance: PREDNISOLONE
     Route: 048
     Dates: start: 20100304, end: 20110323
  24. PREDONINE [Suspect]
     Active Substance: PREDNISOLONE
     Route: 048
     Dates: start: 20130606, end: 20130911
  25. PREDONINE [Suspect]
     Active Substance: PREDNISOLONE
     Route: 048
     Dates: start: 20140306, end: 20140430
  26. CLARITHROMYCIN. [Concomitant]
     Active Substance: CLARITHROMYCIN
     Indication: PNEUMONIA
     Dosage: UNK UNK, UNKNOWN FREQ.
     Route: 065
     Dates: start: 20100325, end: 2010
  27. SODIUM CHLORIDE. [Concomitant]
     Active Substance: SODIUM CHLORIDE
     Indication: ASTHENIA
     Route: 041
     Dates: start: 20151224, end: 20151224
  28. CALONAL [Concomitant]
     Active Substance: ACETAMINOPHEN
     Indication: CHEST PAIN
     Dosage: UNK UNK, UNKNOWN FREQ.
     Route: 065
     Dates: start: 20151130
  29. PREDONINE [Suspect]
     Active Substance: PREDNISOLONE
     Route: 048
     Dates: start: 20111027, end: 20120404
  30. CEFTRIAXONE SODIUM. [Concomitant]
     Active Substance: CEFTRIAXONE SODIUM
     Indication: PNEUMONIA
     Dosage: UNK UNK, UNKNOWN FREQ.
     Route: 065
     Dates: start: 20100325, end: 2010
  31. SOLDEM 3AG [Concomitant]
     Indication: HYPERVENTILATION
     Dosage: UNK UNK, UNKNOWN FREQ.
     Route: 041
  32. CALONAL [Concomitant]
     Active Substance: ACETAMINOPHEN
     Indication: HEAD DISCOMFORT
     Route: 048
  33. TACROLIMUS. [Suspect]
     Active Substance: TACROLIMUS
     Route: 048
     Dates: start: 20080710, end: 20100607
  34. PREDONINE [Suspect]
     Active Substance: PREDNISOLONE
     Route: 048
     Dates: start: 20150305, end: 20151224
  35. PREDONINE [Suspect]
     Active Substance: PREDNISOLONE
     Route: 048
     Dates: start: 20151225, end: 20160215
  36. SODIUM CHLORIDE. [Concomitant]
     Active Substance: SODIUM CHLORIDE
     Indication: SLEEP APNOEA SYNDROME
     Route: 065
     Dates: start: 20151111, end: 20151111

REACTIONS (35)
  - Pain [Recovering/Resolving]
  - Drug level increased [Recovering/Resolving]
  - Oropharyngeal pain [Recovering/Resolving]
  - Ear pain [Recovering/Resolving]
  - Blood uric acid increased [Recovered/Resolved]
  - DNA antibody positive [Recovering/Resolving]
  - Hyperventilation [Recovering/Resolving]
  - Rib fracture [Recovering/Resolving]
  - Cataract [Recovering/Resolving]
  - Fall [Recovering/Resolving]
  - Arthralgia [Unknown]
  - Generalised oedema [Recovering/Resolving]
  - Asthenia [Unknown]
  - Hypertension [Recovering/Resolving]
  - Chest pain [Recovering/Resolving]
  - Sleep apnoea syndrome [Recovering/Resolving]
  - Cough [Recovering/Resolving]
  - Headache [Unknown]
  - Malaise [Unknown]
  - Haematocrit decreased [Not Recovered/Not Resolved]
  - Seizure [Recovered/Resolved]
  - Platelet count decreased [Recovering/Resolving]
  - Hyponatraemia [Recovered/Resolved]
  - Back pain [Recovering/Resolving]
  - Dizziness [Recovering/Resolving]
  - Pneumonia chlamydial [Recovered/Resolved]
  - Influenza [Recovered/Resolved]
  - Head discomfort [Recovering/Resolving]
  - Lupus enteritis [Recovered/Resolved]
  - Seizure [Recovering/Resolving]
  - Tachycardia [Recovering/Resolving]
  - Nausea [Recovering/Resolving]
  - Gastroenteritis salmonella [Recovered/Resolved]
  - Chest discomfort [Recovering/Resolving]
  - Dizziness [Recovering/Resolving]

NARRATIVE: CASE EVENT DATE: 20071108
